FAERS Safety Report 6104259-4 (Version None)
Quarter: 2009Q1

REPORT INFORMATION
  Report Type: 
  Country: None (occurrence: None)
  Receive Date: 20090305
  Receipt Date: 20090303
  Transmission Date: 20090719
  Serious: Yes (Death)
  Sender: FDA-Public Use
  Company Number: PHHY2008JP31775

PATIENT
  Sex: Male
  Weight: 65 kg

DRUGS (11)
  1. VOLTAREN [Suspect]
     Indication: PYREXIA
     Dosage: 25 MG
     Route: 054
     Dates: start: 20070613, end: 20070618
  2. VOLTAREN [Suspect]
     Indication: HYPOTHERMIA
  3. ZYLORIC [Suspect]
     Indication: HYPERURICAEMIA
     Dosage: 100 MG/DAY
     Route: 048
     Dates: start: 20070601, end: 20070625
  4. PURSENNID [Concomitant]
     Indication: CONSTIPATION
     Dosage: 12 MG/DAY
     Route: 048
     Dates: start: 20070604, end: 20070516
  5. RENIVACE [Concomitant]
     Indication: CARDIAC FAILURE
     Dosage: 5 MG/DAY
     Route: 048
     Dates: start: 20070319, end: 20070516
  6. ALDACTONE [Concomitant]
     Indication: CARDIAC FAILURE
     Dosage: 25 MG/DAY
     Route: 048
     Dates: start: 20070322, end: 20070404
  7. NORVASC [Concomitant]
     Indication: HYPERTENSION
     Dosage: 5 MG/DAY
     Route: 048
     Dates: start: 20070324, end: 20070516
  8. MICARDIS [Concomitant]
     Indication: CARDIAC FAILURE
     Dosage: 40 MG/DAY
     Route: 048
     Dates: start: 20070326, end: 20070516
  9. SELBEX [Concomitant]
     Indication: GASTRITIS
     Dosage: 1.5 G/DAY
     Route: 048
     Dates: start: 20070416, end: 20070522
  10. ARTIST [Concomitant]
     Indication: CARDIAC FAILURE
     Dosage: 2.5MG/DAY
     Route: 048
     Dates: start: 20070325, end: 20070516
  11. LASIX [Concomitant]
     Indication: CARDIAC FAILURE
     Dosage: 20MG/DAY
     Route: 042
     Dates: start: 20070519, end: 20070529

REACTIONS (5)
  - CONDITION AGGRAVATED [None]
  - ERYTHEMA [None]
  - RASH GENERALISED [None]
  - STEVENS-JOHNSON SYNDROME [None]
  - TOXIC EPIDERMAL NECROLYSIS [None]
